FAERS Safety Report 6939501-0 (Version None)
Quarter: 2010Q3

REPORT INFORMATION
  Report Type: 
  Country: None (occurrence: None)
  Receive Date: 20100824
  Receipt Date: 20100816
  Transmission Date: 20110219
  Serious: Yes (Hospitalization)
  Sender: FDA-Public Use
  Company Number: US-AMGEN-QUU404061

PATIENT
  Sex: Female
  Weight: 72.6 kg

DRUGS (6)
  1. ENBREL [Suspect]
     Indication: PSORIATIC ARTHROPATHY
     Route: 058
     Dates: start: 20000701
  2. ENBREL [Suspect]
     Indication: PSORIASIS
  3. SYNTHROID [Concomitant]
     Dates: start: 20000101
  4. TACLONEX [Concomitant]
     Dates: start: 20060501
  5. BIAXIN [Concomitant]
     Dates: start: 20080601
  6. VALIUM [Concomitant]
     Dates: start: 20080601

REACTIONS (5)
  - BREAST CANCER [None]
  - PAIN IN EXTREMITY [None]
  - PRURITUS [None]
  - PSORIATIC ARTHROPATHY [None]
  - SKIN DISORDER [None]
